FAERS Safety Report 13241224 (Version 4)
Quarter: 2017Q1

REPORT INFORMATION
  Report Type: Spontaneous
  Country: JP (occurrence: JP)
  Receive Date: 20170216
  Receipt Date: 20170330
  Transmission Date: 20170428
  Serious: Yes (Hospitalization)
  Sender: FDA-Public Use
  Company Number: JP-ASTELLAS-2017JP002540AA

PATIENT
  Age: 82 Year
  Sex: Male
  Weight: 51 kg

DRUGS (13)
  1. LEUPLIN [Concomitant]
     Active Substance: LEUPROLIDE ACETATE
     Indication: PROSTATE CANCER
     Dosage: UNK UNK, MONTHLY
     Route: 058
     Dates: start: 20160430, end: 20160531
  2. LEUPLIN [Concomitant]
     Active Substance: LEUPROLIDE ACETATE
     Indication: PROSTATE CANCER
     Dosage: UNK UNK, ONCE IN 3 MONTHS
     Route: 058
     Dates: start: 20160628
  3. BUP-4 [Concomitant]
     Active Substance: PROPIVERINE
     Indication: POLLAKIURIA
     Route: 048
  4. FLIVAS [Suspect]
     Active Substance: NAFTOPIDIL
     Route: 048
     Dates: start: 20161222, end: 20170119
  5. NEOXY [Concomitant]
     Active Substance: OXYBUTYNIN CHLORIDE
     Indication: POLLAKIURIA
     Route: 062
     Dates: start: 20160302, end: 20160628
  6. BETANIS [Suspect]
     Active Substance: MIRABEGRON
     Indication: POLLAKIURIA
     Route: 048
     Dates: start: 20160628, end: 20160705
  7. ARICEPT [Concomitant]
     Active Substance: DONEPEZIL HYDROCHLORIDE
     Indication: DEMENTIA ALZHEIMER^S TYPE
     Route: 048
  8. FLIVAS [Suspect]
     Active Substance: NAFTOPIDIL
     Indication: POLLAKIURIA
     Route: 048
     Dates: start: 20160302, end: 20160705
  9. CASODEX [Suspect]
     Active Substance: BICALUTAMIDE
     Indication: PROSTATE CANCER
     Route: 048
     Dates: start: 20160420, end: 20160705
  10. HACHIMIJIOGAN [Concomitant]
     Active Substance: HERBALS
     Indication: POLLAKIURIA
     Route: 048
  11. BETANIS [Suspect]
     Active Substance: MIRABEGRON
     Route: 048
     Dates: start: 20161222, end: 20170119
  12. CASODEX [Suspect]
     Active Substance: BICALUTAMIDE
     Route: 048
     Dates: start: 20161222, end: 20170119
  13. VESICARE [Concomitant]
     Active Substance: SOLIFENACIN SUCCINATE
     Indication: POLLAKIURIA
     Route: 048

REACTIONS (3)
  - Blood pressure decreased [Unknown]
  - Tremor [Unknown]
  - Fall [Recovering/Resolving]

NARRATIVE: CASE EVENT DATE: 20160701
